FAERS Safety Report 19239952 (Version 1)
Quarter: 2021Q2

REPORT INFORMATION
  Report Type: Spontaneous
  Country: IT (occurrence: IT)
  Receive Date: 20210510
  Receipt Date: 20210510
  Transmission Date: 20210717
  Serious: Yes (Other)
  Sender: FDA-Public Use
  Company Number: NVSC2021IT103160

PATIENT
  Age: 23 Year
  Sex: Female

DRUGS (2)
  1. ZOLPIDEM [Suspect]
     Active Substance: ZOLPIDEM TARTRATE
     Indication: INSOMNIA
     Dosage: 10 MG, QD (AT BEDTIME)
     Route: 065
  2. ZOLPIDEM [Suspect]
     Active Substance: ZOLPIDEM TARTRATE
     Indication: IRREGULAR SLEEP WAKE RHYTHM DISORDER
     Dosage: 30 MG, QD (SELF?ADMINISTERED)
     Route: 048

REACTIONS (4)
  - Intentional product misuse [Unknown]
  - Psychomotor hyperactivity [Recovered/Resolved]
  - Euphoric mood [Recovered/Resolved]
  - Disinhibition [Recovered/Resolved]
